FAERS Safety Report 6983745-9 (Version None)
Quarter: 2010Q3

REPORT INFORMATION
  Report Type: 
  Country: None (occurrence: None)
  Receive Date: 20100914
  Receipt Date: 20051125
  Transmission Date: 20110219
  Serious: Yes (Hospitalization)
  Sender: FDA-Public Use
  Company Number: US-WYE-H07141508

PATIENT
  Age: 59 Year
  Sex: Female
  Weight: 63.2 kg

DRUGS (3)
  1. IBUPROFEN [Suspect]
     Indication: PAIN
     Dosage: AS NEEDED, ^CHRONIC^
     Route: 065
  2. DIGOXIN [Concomitant]
  3. WARFARIN SODIUM [Suspect]
     Indication: ATRIAL FIBRILLATION
     Dosage: ^CHRONIC^
     Route: 065

REACTIONS (4)
  - DIZZINESS [None]
  - DYSPNOEA EXERTIONAL [None]
  - GASTRIC ULCER [None]
  - MALAISE [None]
